FAERS Safety Report 6916231-2 (Version None)
Quarter: 2010Q3

REPORT INFORMATION
  Report Type: 
  Country: None (occurrence: None)
  Receive Date: 20100810
  Receipt Date: 20100804
  Transmission Date: 20110219
  Serious: No
  Sender: FDA-Public Use
  Company Number: 2009BI001170

PATIENT
  Age: 24 Year
  Sex: Female

DRUGS (1)
  1. TYSABRI [Suspect]
     Indication: MULTIPLE SCLEROSIS
     Route: 042
     Dates: start: 20080211

REACTIONS (6)
  - CERUMEN IMPACTION [None]
  - EXOSTOSIS [None]
  - INTERVERTEBRAL DISC PROTRUSION [None]
  - MEMORY IMPAIRMENT [None]
  - MIGRAINE [None]
  - ROAD TRAFFIC ACCIDENT [None]
